FAERS Safety Report 13199166 (Version 1)
Quarter: 2017Q1

REPORT INFORMATION
  Report Type: Spontaneous
  Country: FR (occurrence: FR)
  Receive Date: 20170208
  Receipt Date: 20170208
  Transmission Date: 20170428
  Serious: Yes (Hospitalization, Other)
  Sender: FDA-Public Use
  Company Number: FR-KADMON PHARMACEUTICALS, LLC-KAD201702-000307

PATIENT
  Age: 74 Year
  Sex: Female

DRUGS (15)
  1. LEVOCETIRIZINE DIHYDROCHLORIDE. [Concomitant]
     Active Substance: LEVOCETIRIZINE DIHYDROCHLORIDE
  2. PARACETAMOL [Concomitant]
     Active Substance: ACETAMINOPHEN
  3. TIOTROPIUM BROMIDE MONOHYDRATE [Concomitant]
     Active Substance: TIOTROPIUM BROMIDE MONOHYDRATE
  4. DIHYDRATE BUDESONIDE W/FORMOTEROL FUMARATE [Concomitant]
  5. VIEKIRAX [Suspect]
     Active Substance: OMBITASVIR\PARITAPREVIR\RITONAVIR
     Indication: HEPATITIS C
     Dosage: TABLET; 12.5/75/50 MG X 2 DOSAGE FORM IN THE MORNING
     Route: 048
     Dates: start: 20160919, end: 20170117
  6. LEVOTHYROXINE. [Concomitant]
     Active Substance: LEVOTHYROXINE
  7. ZOLPIDEM TARTRATE. [Concomitant]
     Active Substance: ZOLPIDEM TARTRATE
  8. FUROSEMID 500 MG [Concomitant]
  9. FLUINDIONE [Concomitant]
     Active Substance: FLUINDIONE
  10. BISOPROLOL [Concomitant]
     Active Substance: BISOPROLOL
  11. RIBAVIRIN. [Suspect]
     Active Substance: RIBAVIRIN
     Indication: HEPATITIS C
     Dosage: TABLET
     Route: 048
  12. POTASSIUM CHLORIDE. [Concomitant]
     Active Substance: POTASSIUM CHLORIDE
  13. HAMAMELIS [Concomitant]
     Active Substance: HAMAMELIS VIRGINIANA LEAF
  14. MACROGOL [Concomitant]
     Active Substance: POLYETHYLENE GLYCOLS
  15. LEKOVIT CA [Concomitant]
     Active Substance: CALCIUM CARBONATE\CHOLECALCIFEROL

REACTIONS (4)
  - Pulmonary hypertension [Recovering/Resolving]
  - Anaemia [Recovering/Resolving]
  - Cardiac failure [Recovering/Resolving]
  - Hepatocellular carcinoma [Unknown]

NARRATIVE: CASE EVENT DATE: 20161005
